FAERS Safety Report 12010612 (Version 1)
Quarter: 2016Q1

REPORT INFORMATION
  Report Type: Report from Study
  Country: ES (occurrence: ES)
  Receive Date: 20160205
  Receipt Date: 20160205
  Transmission Date: 20160526
  Serious: Yes (Other)
  Sender: FDA-Public Use
  Company Number: ES-BRISTOL-MYERS SQUIBB COMPANY-16487837

PATIENT
  Age: 54 Year
  Sex: Female
  Weight: 70.3 kg

DRUGS (9)
  1. ANAFRANIL [Interacting]
     Active Substance: CLOMIPRAMINE HYDROCHLORIDE
     Indication: OBSESSIVE-COMPULSIVE DISORDER
     Dosage: DF: COATED TABS, 37.5MG:JAN11 TO 09JUN11; 100MG:09JUN11 TO 25JUN11; 75MG:25JUN11 AND CONTINUING
     Route: 048
     Dates: start: 201101
  2. EVISTA [Interacting]
     Active Substance: RALOXIFENE HYDROCHLORIDE
     Indication: OSTEOPOROSIS
     Dosage: COATED TAB
     Route: 048
     Dates: start: 201008
  3. CALCIUM CARBONATE. [Interacting]
     Active Substance: CALCIUM CARBONATE
     Indication: OSTEOPOROSIS
     Dosage: CHEWABLE TABS
     Route: 048
     Dates: start: 201007
  4. ITRACONAZOLE. [Interacting]
     Active Substance: ITRACONAZOLE
     Indication: VULVOVAGINAL CANDIDIASIS
     Dosage: HARD CAPSULE,LAST ADMINS ON 30AUG11
     Route: 048
     Dates: start: 201102
  5. ABILIFY [Interacting]
     Active Substance: ARIPIPRAZOLE
     Indication: OBSESSIVE-COMPULSIVE DISORDER
     Dosage: DF: 2.5MG:23MAR11-30MAR11,5MG:30MAR11-09JUN11,15MG:09JUN11-JUL11,20 MG
     Route: 048
     Dates: start: 20110609
  6. KETOCONAZOLE. [Interacting]
     Active Substance: KETOCONAZOLE
     Indication: VULVOVAGINAL CANDIDIASIS
     Dosage: PESSARY,LAST ADMINS ON 21MAY11  DURATION:57
     Route: 067
     Dates: start: 20110326
  7. FORTASEC [Interacting]
     Active Substance: LOPERAMIDE HYDROCHLORIDE
     Indication: DIARRHOEA
     Dosage: HARD CAPS  ROUTE:065  ACTION TAKE:4
     Route: 065
     Dates: start: 2010
  8. ARIPIPRAZOLE. [Suspect]
     Active Substance: ARIPIPRAZOLE
     Indication: OBSESSIVE-COMPULSIVE DISORDER
     Dosage: 10 MG, QD
     Route: 048
     Dates: start: 201107
  9. SERTRALINE [Interacting]
     Active Substance: SERTRALINE HYDROCHLORIDE
     Indication: OBSESSIVE-COMPULSIVE DISORDER
     Dosage: 100 MG, BID
     Route: 048
     Dates: start: 201101

REACTIONS (3)
  - Drug interaction [Unknown]
  - Off label use [Unknown]
  - Abnormal weight gain [Not Recovered/Not Resolved]

NARRATIVE: CASE EVENT DATE: 2011
